FAERS Safety Report 7527312-7 (Version None)
Quarter: 2011Q2

REPORT INFORMATION
  Report Type: 
  Country: None (occurrence: None)
  Receive Date: 20110607
  Receipt Date: 20110128
  Transmission Date: 20111010
  Serious: Yes (Hospitalization, Other)
  Sender: FDA-Public Use
  Company Number: US-BAYER-201020235NA

PATIENT
  Age: 17 Year
  Sex: Female
  Weight: 54.422 kg

DRUGS (10)
  1. ALBUTEROL SULFATE AUTOHALER [Concomitant]
  2. TOPAMAX [Concomitant]
     Dosage: 50 MG, BID
     Route: 048
  3. PRILOSEC [Concomitant]
  4. PREVACID [Concomitant]
     Dosage: 30 MG, QD
     Route: 048
  5. PROVENTIL [Concomitant]
     Dosage: 90 MCG/24HR, UNK
  6. PROMETHAZINE [Concomitant]
     Dosage: 25 MG, UNK
     Route: 048
  7. MAXALT-MLT [Concomitant]
     Dosage: 10 MG, UNK
     Route: 048
  8. YASMIN [Suspect]
     Indication: CONTRACEPTION
     Dosage: UNK
     Route: 048
     Dates: start: 20050101, end: 20091101
  9. TRAMADOL HCL [Concomitant]
     Dosage: 50 MG, UNK
     Route: 048
  10. METFORMIN HCL [Concomitant]
     Dosage: 500 MG, BID
     Route: 048

REACTIONS (3)
  - GALLBLADDER DISORDER [None]
  - CHOLECYSTITIS CHRONIC [None]
  - BILIARY DYSKINESIA [None]
